FAERS Safety Report 22003823 (Version 5)
Quarter: 2023Q2

REPORT INFORMATION
  Report Type: Report from Study
  Country: CA (occurrence: CA)
  Receive Date: 20230217
  Receipt Date: 20230519
  Transmission Date: 20230722
  Serious: Yes (Other)
  Sender: FDA-Public Use
  Company Number: CA-TAKEDA-2022TUS071697

PATIENT
  Age: 67 Year
  Sex: Female

DRUGS (3)
  1. VEDOLIZUMAB [Suspect]
     Active Substance: VEDOLIZUMAB
     Indication: Colitis ulcerative
     Dosage: 300 MILLIGRAM
     Route: 042
     Dates: start: 20220901
  2. VEDOLIZUMAB [Suspect]
     Active Substance: VEDOLIZUMAB
     Dosage: 300 MILLIGRAM
     Route: 042
  3. Salofalk [Concomitant]
     Dosage: UNK

REACTIONS (8)
  - Colitis ulcerative [Unknown]
  - Diverticulitis [Recovered/Resolved]
  - Frequent bowel movements [Unknown]
  - Procedural pain [Unknown]
  - Stoma site pain [Unknown]
  - Stoma site discomfort [Unknown]
  - Impaired healing [Not Recovered/Not Resolved]
  - Gait disturbance [Not Recovered/Not Resolved]
